FAERS Safety Report 7396450-4 (Version None)
Quarter: 2011Q2

REPORT INFORMATION
  Report Type: 
  Country: None (occurrence: None)
  Receive Date: 20110406
  Receipt Date: 20101029
  Transmission Date: 20111010
  Serious: Yes (Hospitalization)
  Sender: FDA-Public Use
  Company Number: US-BAYER-201020543NA

PATIENT
  Sex: Female
  Weight: 78.005 kg

DRUGS (5)
  1. YAZ [Suspect]
     Indication: CONTRACEPTION
     Dosage: UNK
     Dates: start: 20070901, end: 20080301
  2. YAZ [Suspect]
     Indication: ACNE
  3. KETOCONAZOLE [Concomitant]
     Indication: SKIN INFECTION
  4. YAZ [Suspect]
     Indication: PREMENSTRUAL SYNDROME
  5. RANITIDINE [Concomitant]
     Indication: GASTROOESOPHAGEAL REFLUX DISEASE
     Dosage: 150 MG, BID

REACTIONS (5)
  - PAIN [None]
  - NAUSEA [None]
  - MENTAL DISORDER [None]
  - GALLBLADDER DISORDER [None]
  - BILIARY DYSKINESIA [None]
